FAERS Safety Report 6329860-4 (Version None)
Quarter: 2009Q3

REPORT INFORMATION
  Report Type: 
  Country: None (occurrence: None)
  Receive Date: 20090826
  Receipt Date: 20090824
  Transmission Date: 20100115
  Serious: Yes (Death, Hospitalization, Other)
  Sender: FDA-Public Use
  Company Number: PHHY2009NO35203

PATIENT
  Sex: Male

DRUGS (2)
  1. CERTICAN [Suspect]
     Indication: HEART TRANSPLANT
     Dosage: 0.25 MG + 0.5 MG DAILY
     Dates: start: 20081202
  2. SANDIMMUNE [Suspect]
     Indication: HEART TRANSPLANT
     Dosage: 25 MG, BID
     Dates: start: 20081202

REACTIONS (4)
  - BRAIN HYPOXIA [None]
  - DYSPNOEA [None]
  - PULMONARY EMBOLISM [None]
  - RENAL IMPAIRMENT [None]
